FAERS Safety Report 6088154-5 (Version None)
Quarter: 2009Q1

REPORT INFORMATION
  Report Type: 
  Country: None (occurrence: None)
  Receive Date: 20090224
  Receipt Date: 20090213
  Transmission Date: 20090719
  Serious: Yes (Disabling, Other)
  Sender: FDA-Public Use
  Company Number: PHBS2009GR00829

PATIENT
  Age: 66 Year
  Sex: Female

DRUGS (4)
  1. ZOLEDRONIC ACID [Suspect]
     Indication: MULTIPLE MYELOMA
     Dosage: 4 MG OVER 15 MIN EVERY 4 WEEKS.
  2. THALIDOMIDE [Concomitant]
  3. BORTEZOMIB [Concomitant]
  4. DEXAMETHASONE [Concomitant]
     Dosage: 40 MG 4 DAYS FOR EVERY 4 WEEKS.

REACTIONS (4)
  - ORAL PAIN [None]
  - ORAL SURGERY [None]
  - OSTEONECROSIS [None]
  - PURULENT DISCHARGE [None]
